FAERS Safety Report 4728973-8 (Version None)
Quarter: 2005Q3

REPORT INFORMATION
  Report Type: 
  Country: None (occurrence: None)
  Receive Date: 20050729
  Receipt Date: 20041206
  Transmission Date: 20060218
  Serious: No
  Sender: FDA-Public Use
  Company Number: US-GLAXOSMITHKLINE-A0536520A

PATIENT
  Age: 41 Year
  Sex: Female

DRUGS (8)
  1. IMITREX [Suspect]
     Indication: MIGRAINE
     Dosage: 100MG VARIABLE DOSE
     Route: 048
     Dates: start: 20040604
  2. METFORMIN [Concomitant]
  3. LORAZEPAM [Concomitant]
  4. PRAVACHOL [Concomitant]
  5. LEXAPRO [Concomitant]
  6. SINGULAIR [Concomitant]
  7. ASPIRIN [Concomitant]
  8. ORAL CONTRACEPTIVES [Concomitant]

REACTIONS (3)
  - DYSPHAGIA [None]
  - HYPERAESTHESIA [None]
  - PAIN OF SKIN [None]
